FAERS Safety Report 25407329 (Version 3)
Quarter: 2025Q4

REPORT INFORMATION
  Report Type: Spontaneous
  Country: IN (occurrence: IN)
  Receive Date: 20250606
  Receipt Date: 20251015
  Transmission Date: 20260118
  Serious: Yes (Death, Hospitalization, Other)
  Sender: PFIZER
  Company Number: IN-PFIZER INC-PV202500066365

PATIENT
  Age: 39 Year
  Sex: Female

DRUGS (1)
  1. CRIZOTINIB [Suspect]
     Active Substance: CRIZOTINIB
     Dosage: 250 MG
     Route: 048
     Dates: start: 20250521

REACTIONS (4)
  - Death [Fatal]
  - Angina pectoris [Unknown]
  - Chest pain [Unknown]
  - Vertebroplasty [Unknown]

NARRATIVE: CASE EVENT DATE: 20250809
